FAERS Safety Report 4470810-3 (Version None)
Quarter: 2004Q4

REPORT INFORMATION
  Report Type: 
  Country: None (occurrence: None)
  Receive Date: 20041011
  Receipt Date: 20040927
  Transmission Date: 20050328
  Serious: Yes (Hospitalization)
  Sender: FDA-Public Use
  Company Number: US-BRISTOL-MYERS SQUIBB COMPANY-12715702

PATIENT
  Age: 43 Year
  Sex: Female
  Weight: 110 kg

DRUGS (4)
  1. ERBITUX [Suspect]
     Indication: COLORECTAL CANCER
     Dosage: ON HOLD,1ST 05-MAY-04 (844MG),2ND 13-MAY-04(2ND LOAD DOSE,844MG), REC'D TOTAL OF 15 DOSES
     Route: 042
     Dates: start: 20040101, end: 20040101
  2. FLUOROURACIL [Concomitant]
  3. IRINOTECAN [Concomitant]
  4. LEUCOVORIN CALCIUM [Concomitant]

REACTIONS (4)
  - BLISTER [None]
  - PANCREATIC PSEUDOCYST [None]
  - PYREXIA [None]
  - STAPHYLOCOCCAL INFECTION [None]
